FAERS Safety Report 12199616 (Version 3)
Quarter: 2016Q2

REPORT INFORMATION
  Report Type: Spontaneous
  Country: US (occurrence: US)
  Receive Date: 20160322
  Receipt Date: 20160413
  Transmission Date: 20160815
  Serious: No
  Sender: FDA-Public Use
  Company Number: US-PFIZER INC-2016158510

PATIENT
  Age: 41 Year
  Sex: Male

DRUGS (5)
  1. PHENYTOIN. [Suspect]
     Active Substance: PHENYTOIN
     Dosage: UNK
     Dates: start: 2013
  2. VITAMIN D [Concomitant]
     Active Substance: CHOLECALCIFEROL
  3. PHENYTOIN. [Suspect]
     Active Substance: PHENYTOIN
     Indication: SEIZURE
     Dosage: UNK
     Route: 048
  4. SIMVASTATIN. [Concomitant]
     Active Substance: SIMVASTATIN
     Indication: BLOOD CHOLESTEROL
     Dosage: 40 MG, 1X/DAY (1 TABLET IN THE EVENING)
     Route: 048
  5. 25-HYDROXYVITAMIN D3 [Concomitant]
     Dosage: UNK (30.00-100.00  NG/ML)

REACTIONS (6)
  - Aura [Unknown]
  - Sedation [Unknown]
  - Drug hypersensitivity [Unknown]
  - Sluggishness [Unknown]
  - Drug ineffective [Not Recovered/Not Resolved]
  - Somnolence [Unknown]
